FAERS Safety Report 19835712 (Version 1)
Quarter: 2021Q3

REPORT INFORMATION
  Report Type: Spontaneous
  Country: FR (occurrence: FR)
  Receive Date: 20210915
  Receipt Date: 20210915
  Transmission Date: 20211014
  Serious: Yes (Other)
  Sender: FDA-Public Use
  Company Number: FR-PFIZER INC-202101141945

PATIENT
  Age: 44 Year
  Sex: Male

DRUGS (7)
  1. DOCETAXEL. [Suspect]
     Active Substance: DOCETAXEL
     Indication: SQUAMOUS CELL CARCINOMA OF THE PAROTID GLAND
     Dosage: 2 CYCLES
     Route: 042
     Dates: start: 20210406, end: 20210429
  2. TOPALGIC [Concomitant]
     Dosage: UNK
  3. CARBOPLATIN. [Suspect]
     Active Substance: CARBOPLATIN
     Indication: SQUAMOUS CELL CARCINOMA OF THE PAROTID GLAND
     Dosage: 2 CYCLES
     Route: 042
     Dates: start: 20210406, end: 20210429
  4. ERBITUX [Concomitant]
     Active Substance: CETUXIMAB
     Dosage: UNK
  5. CISPLATINE [Suspect]
     Active Substance: CISPLATIN
     Indication: SQUAMOUS CELL CARCINOMA OF THE PAROTID GLAND
     Dosage: 2 CYCLES
     Route: 042
     Dates: start: 20210216, end: 20210309
  6. DOXYCYCLINE. [Concomitant]
     Active Substance: DOXYCYCLINE
     Dosage: UNK
  7. DOLIPRANE [Concomitant]
     Active Substance: ACETAMINOPHEN
     Dosage: UNK

REACTIONS (2)
  - Peripheral ischaemia [Recovering/Resolving]
  - Off label use [Unknown]

NARRATIVE: CASE EVENT DATE: 20210406
